FAERS Safety Report 7100670-3 (Version None)
Quarter: 2010Q4

REPORT INFORMATION
  Report Type: 
  Country: None (occurrence: None)
  Receive Date: 20101113
  Receipt Date: 20100308
  Transmission Date: 20110411
  Serious: No
  Sender: FDA-Public Use
  Company Number: US-ALLERGAN-1000929US

PATIENT
  Age: 44 Year
  Sex: Male
  Weight: 63.492 kg

DRUGS (1)
  1. BOTOX COSMETIC [Suspect]
     Indication: SKIN WRINKLING
     Dosage: 10 UNITS, SINGLE
     Route: 030
     Dates: start: 20091218, end: 20091218

REACTIONS (2)
  - HEADACHE [None]
  - INJECTION SITE PAIN [None]
